FAERS Safety Report 14750047 (Version 1)
Quarter: 2018Q2

REPORT INFORMATION
  Report Type: Spontaneous
  Country: US (occurrence: US)
  Receive Date: 20180412
  Receipt Date: 20180412
  Transmission Date: 20180711
  Serious: Yes (Death, Hospitalization, Other)
  Sender: FDA-Public Use
  Company Number: US-ZYDUS-019658

PATIENT
  Age: 53 Year
  Sex: Male

DRUGS (4)
  1. VALPROIC ACID. [Concomitant]
     Active Substance: VALPROIC ACID
     Indication: PRODUCT USED FOR UNKNOWN INDICATION
     Route: 065
  2. RISPERIDONE. [Concomitant]
     Active Substance: RISPERIDONE
     Indication: PRODUCT USED FOR UNKNOWN INDICATION
     Route: 065
  3. AMLODIPINE [Suspect]
     Active Substance: AMLODIPINE BESYLATE
     Indication: PRODUCT USED FOR UNKNOWN INDICATION
     Route: 048
  4. TRAZODONE [Concomitant]
     Active Substance: TRAZODONE HYDROCHLORIDE
     Indication: PRODUCT USED FOR UNKNOWN INDICATION
     Route: 065

REACTIONS (12)
  - Brain death [Fatal]
  - Hyperhidrosis [Unknown]
  - Pulseless electrical activity [Unknown]
  - Intentional overdose [Unknown]
  - Cardiac arrest [Unknown]
  - Brain injury [Unknown]
  - Mental disorder [Unknown]
  - Bradycardia [Unknown]
  - Completed suicide [Fatal]
  - Acute kidney injury [Unknown]
  - Hypotension [Unknown]
  - Brain herniation [Unknown]
